FAERS Safety Report 8330196-0 (Version None)
Quarter: 2012Q2

REPORT INFORMATION
  Report Type: 
  Country: None (occurrence: None)
  Receive Date: 20120502
  Receipt Date: 20101103
  Transmission Date: 20120825
  Serious: Yes (Other)
  Sender: FDA-Public Use
  Company Number: CHPA2010US17402

PATIENT

DRUGS (1)
  1. DIPHENHYDRAMINE HCL [Suspect]
     Dosage: 0.92 MG/KG
     Route: 048

REACTIONS (1)
  - HALLUCINATION [None]
